FAERS Safety Report 8882681 (Version 1)
Quarter: 2012Q4

REPORT INFORMATION
  Report Type: 
  Country: US (occurrence: US)
  Receive Date: 20121104
  Receipt Date: 20121104
  Transmission Date: 20130627
  Serious: Yes (Hospitalization)
  Sender: FDA-Public Use
  Company Number: US-ROXANE LABORATORIES, INC.-2012-EU-05473GD

PATIENT
  Age: 28 Year
  Sex: Female

DRUGS (6)
  1. CODEINE [Suspect]
  2. MORPHINE [Suspect]
  3. LORAZEPAM [Suspect]
  4. TEMAZEPAM [Suspect]
  5. BUTALBITAL [Suspect]
  6. ZOLPIDEM [Suspect]

REACTIONS (6)
  - Sciatic nerve neuropathy [Unknown]
  - Nerve compression [Unknown]
  - Oedema peripheral [Unknown]
  - Hypoaesthesia [Unknown]
  - Muscular weakness [Unknown]
  - Abasia [Unknown]
